FAERS Safety Report 5610088-8 (Version None)
Quarter: 2008Q1

REPORT INFORMATION
  Report Type: 
  Country: None (occurrence: None)
  Receive Date: 20080131
  Receipt Date: 20071109
  Transmission Date: 20080703
  Serious: No
  Sender: FDA-Public Use
  Company Number: US-BAYER-200810012GPV

PATIENT
  Age: 34 Year
  Sex: Female

DRUGS (1)
  1. SULAR [Suspect]
     Indication: HYPERTENSION
     Route: 048

REACTIONS (1)
  - OEDEMA PERIPHERAL [None]
